FAERS Safety Report 9761361 (Version 1)
Quarter: 2013Q4

REPORT INFORMATION
  Report Type: Spontaneous
  Country: FR (occurrence: FR)
  Receive Date: 20131216
  Receipt Date: 20131216
  Transmission Date: 20140711
  Serious: Yes (Death)
  Sender: FDA-Public Use
  Company Number: FR-BAXTER-2013BAX049163

PATIENT
  Age: 78 Year
  Sex: Male

DRUGS (3)
  1. CLINIMIX N17G35E, SOLUTION POUR PERFUSION EN POCHE BICOMPARTIMENT [Suspect]
     Indication: PARENTERAL NUTRITION
     Route: 058
     Dates: start: 20111025, end: 20120327
  2. CLINIMIX N17G35E, SOLUTION POUR PERFUSION EN POCHE BICOMPARTIMENT [Suspect]
     Indication: OFF LABEL USE
  3. PHYSIOLOGICAL SALINE SOLUTION [Concomitant]
     Indication: PRODUCT USED FOR UNKNOWN INDICATION
     Route: 065

REACTIONS (3)
  - Unevaluable event [Fatal]
  - Off label use [Unknown]
  - Induration [Unknown]
